FAERS Safety Report 6162355-X (Version None)
Quarter: 2009Q2

REPORT INFORMATION
  Report Type: 
  Country: None (occurrence: None)
  Receive Date: 20090421
  Receipt Date: 20070611
  Transmission Date: 20091009
  Serious: No
  Sender: FDA-Public Use
  Company Number: US-SOLVAY-00207032715

PATIENT
  Age: 651 Month
  Sex: Female
  Weight: 56.5 kg

DRUGS (3)
  1. ANDROGEL [Suspect]
     Indication: ACCIDENTAL EXPOSURE
     Dosage: DAILY DOSE: 5 GRAM(S) VIA PUMP
     Route: 062
     Dates: start: 20070501, end: 20070608
  2. ANDROGEL [Suspect]
     Dosage: DAILY DOSE: 10 GRAM(S) VIA PUMP
     Route: 062
     Dates: start: 20070609
  3. SOLARAZE [Concomitant]
     Indication: ACTINIC KERATOSIS
     Dosage: DAILY DOSE:  UNKNOWN
     Route: 061
     Dates: start: 20070528

REACTIONS (3)
  - BREAST TENDERNESS [None]
  - DIARRHOEA [None]
  - NAUSEA [None]
